FAERS Safety Report 4921973-4 (Version None)
Quarter: 2006Q1

REPORT INFORMATION
  Report Type: 
  Country: None (occurrence: None)
  Receive Date: 20060224
  Receipt Date: 20060126
  Transmission Date: 20060701
  Serious: No
  Sender: FDA-Public Use
  Company Number: US-BRISTOL-MYERS SQUIBB COMPANY-13262878

PATIENT
  Sex: Male

DRUGS (1)
  1. MONISTAT 1 COMBINATION PACK [Suspect]
     Dates: start: 20060120, end: 20060120

REACTIONS (3)
  - BLISTER [None]
  - GENITAL BURNING SENSATION [None]
  - PENILE DISCHARGE [None]
